FAERS Safety Report 5756994-5 (Version None)
Quarter: 2008Q2

REPORT INFORMATION
  Report Type: 
  Country: None (occurrence: None)
  Receive Date: 20080603
  Receipt Date: 20080523
  Transmission Date: 20081010
  Serious: Yes (Death, Hospitalization)
  Sender: FDA-Public Use
  Company Number: FR-ELI_LILLY_AND_COMPANY-FR200805004796

PATIENT
  Sex: Female

DRUGS (16)
  1. GEMZAR [Suspect]
     Indication: OVARIAN EPITHELIAL CANCER
     Dosage: 1000 MG/M2, UNKNOWN
     Route: 042
     Dates: start: 20070321
  2. TAXOL [Concomitant]
     Indication: OVARIAN EPITHELIAL CANCER
     Dosage: 80 MG/M2, UNKNOWN
     Route: 042
     Dates: start: 20070321
  3. AVASTIN [Concomitant]
     Indication: OVARIAN EPITHELIAL CANCER
     Dosage: 7.5 MG/KG, EVERY 21 DAYS
     Route: 042
     Dates: start: 20071029
  4. PROZAC [Concomitant]
     Dosage: 20 MG, DAILY (1/D)
     Route: 048
  5. PANTOPRAZOLE SODIUM [Concomitant]
     Dosage: 40 MG, DAILY (1/D)
     Route: 065
  6. LEXOMIL [Concomitant]
     Dosage: 4.5 MG, DAILY (1/D)
     Route: 065
  7. CORTANCYL [Concomitant]
     Dosage: UNK, UNKNOWN
     Route: 065
  8. WELLVONE [Concomitant]
     Dosage: 750 MG, DAILY (1/D)
     Route: 065
  9. INNOHEP [Concomitant]
     Dosage: 0.5 ML, DAILY (1/D)
     Route: 065
  10. NEORECORMON [Concomitant]
     Dosage: UNK, UNKNOWN
     Route: 065
  11. AUGMENTIN '125' [Concomitant]
     Dosage: 2 G, DAILY (1/D)
     Route: 065
  12. KENZEN [Concomitant]
     Dosage: 4 MG, DAILY (1/D)
     Route: 065
  13. ZOPHREN [Concomitant]
     Dosage: UNK, UNKNOWN
     Route: 065
     Dates: start: 20071119
  14. METHYLPREDNISOLONE [Concomitant]
     Dosage: UNK, UNKNOWN
     Route: 065
     Dates: start: 20071119
  15. POLARAMINE [Concomitant]
     Dosage: UNK, UNKNOWN
     Route: 065
     Dates: start: 20071119
  16. RANITIDINE [Concomitant]
     Dosage: UNK, UNKNOWN
     Route: 065
     Dates: start: 20071119

REACTIONS (1)
  - CAPILLARY LEAK SYNDROME [None]
